FAERS Safety Report 7335810-4 (Version None)
Quarter: 2011Q1

REPORT INFORMATION
  Report Type: 
  Country: None (occurrence: None)
  Receive Date: 20110307
  Receipt Date: 20110303
  Transmission Date: 20110831
  Serious: Yes (Other)
  Sender: FDA-Public Use
  Company Number: US-PFIZER INC-2009179978

PATIENT
  Sex: Female
  Weight: 73.9 kg

DRUGS (16)
  1. SIMVASTATIN [Concomitant]
     Dosage: UNK
  2. COMBIVENT [Concomitant]
     Indication: LUNG DISORDER
     Dosage: UNK,  2 PUFFS 4 TIMES A DAY
     Route: 055
  3. CHANTIX [Suspect]
     Indication: SMOKING CESSATION THERAPY
     Dosage: 1 MG, 2X/DAY
     Dates: start: 20081101
  4. PROAIR HFA [Concomitant]
     Dosage: UNK
  5. SOMA [Concomitant]
     Indication: MUSCULOSKELETAL PAIN
     Dosage: 350 MG, 4X/DAY
     Route: 048
  6. VITAMIN A [Concomitant]
     Dosage: UNK
  7. VENTOLIN [Concomitant]
     Indication: LUNG DISORDER
     Dosage: UNK,2 PUFFS 4 TIMES A DAY
     Route: 055
  8. ADVAIR DISKUS 100/50 [Concomitant]
     Indication: LUNG DISORDER
     Dosage: UNK, TWO TIMES A DAY
     Route: 055
  9. FISH OIL [Concomitant]
     Dosage: UNK
  10. CHANTIX [Suspect]
     Dosage: UNK
     Route: 048
  11. ACETYLSALICYLIC ACID [Concomitant]
     Dosage: 81 MG, UNK
  12. VITAMIN E [Concomitant]
     Dosage: UNK
  13. LORTAB [Concomitant]
     Dosage: UNK
  14. NEXIUM [Concomitant]
     Dosage: UNK
  15. CHANTIX [Suspect]
     Dosage: 1 MG, 2X/DAY
     Route: 048
     Dates: start: 20090201
  16. SPIRIVA [Concomitant]
     Indication: LUNG DISORDER
     Dosage: UNK
     Route: 055

REACTIONS (14)
  - FEELING ABNORMAL [None]
  - ABNORMAL BEHAVIOUR [None]
  - DYSPNOEA [None]
  - COUGH [None]
  - ABNORMAL DREAMS [None]
  - INTERSTITIAL LUNG DISEASE [None]
  - VOMITING [None]
  - DRUG INEFFECTIVE [None]
  - DYSGEUSIA [None]
  - TOBACCO USER [None]
  - MALAISE [None]
  - STRESS [None]
  - DYSPEPSIA [None]
  - NAUSEA [None]
